FAERS Safety Report 6751283-4 (Version None)
Quarter: 2010Q2

REPORT INFORMATION
  Report Type: 
  Country: None (occurrence: None)
  Receive Date: 20100602
  Receipt Date: 20100524
  Transmission Date: 20101027
  Serious: No
  Sender: FDA-Public Use
  Company Number: US-ROXANE LABORATORIES, INC.-2010-RO-00652RO

PATIENT

DRUGS (2)
  1. CYCLOPHOSPHAMIDE [Suspect]
  2. DOCETAXEL [Suspect]

REACTIONS (1)
  - RASH [None]
